FAERS Safety Report 24057678 (Version 2)
Quarter: 2024Q3

REPORT INFORMATION
  Report Type: Spontaneous
  Country: ID (occurrence: ID)
  Receive Date: 20240706
  Receipt Date: 20240716
  Transmission Date: 20241016
  Serious: Yes (Hospitalization, Other)
  Sender: BAXTER
  Company Number: ID-BAXTER-2024BAX020764

PATIENT
  Age: 42 Year

DRUGS (2)
  1. IFOSFAMIDE [Suspect]
     Active Substance: IFOSFAMIDE
     Indication: Cervix carcinoma
     Dosage: UNK
     Route: 065
     Dates: start: 20240619
  2. MESNA [Suspect]
     Active Substance: MESNA
     Indication: Cervix carcinoma
     Dosage: UNK, START DATE: JUN-2024
     Route: 065

REACTIONS (2)
  - Hallucination [Recovering/Resolving]
  - Screaming [Recovering/Resolving]
